FAERS Safety Report 24256105 (Version 3)
Quarter: 2024Q3

REPORT INFORMATION
  Report Type: Spontaneous
  Country: JP (occurrence: JP)
  Receive Date: 20240827
  Receipt Date: 20240902
  Transmission Date: 20241016
  Serious: Yes (Death, Hospitalization)
  Sender: NOVARTIS
  Company Number: JP-002147023-NVSJ2024JP010029

PATIENT
  Sex: Male

DRUGS (2)
  1. LUTATHERA [Suspect]
     Active Substance: LUTETIUM OXODOTREOTIDE LU-177
     Indication: Pancreatic neuroendocrine tumour
     Dosage: UNK
     Route: 042
     Dates: start: 20240711, end: 20240711
  2. L-ARGININ-PYROGLUTAMAT + L-LYSIN [Concomitant]
     Indication: Product used for unknown indication
     Route: 042

REACTIONS (9)
  - Pancreatic neuroendocrine tumour [Fatal]
  - Malignant neoplasm progression [Fatal]
  - Performance status decreased [Fatal]
  - Ascites [Fatal]
  - Metastases to gastrointestinal tract [Fatal]
  - Gastrointestinal haemorrhage [Fatal]
  - Haematemesis [Fatal]
  - Melaena [Fatal]
  - Diarrhoea [Fatal]

NARRATIVE: CASE EVENT DATE: 20240801
